FAERS Safety Report 4667980-0 (Version None)
Quarter: 2005Q2

REPORT INFORMATION
  Report Type: 
  Country: None (occurrence: None)
  Receive Date: 20050519
  Receipt Date: 20050511
  Transmission Date: 20051028
  Serious: Yes (Other)
  Sender: FDA-Public Use
  Company Number: 2005-05-0619

PATIENT

DRUGS (1)
  1. TEMODAL [Suspect]
     Dosage: ORAL
     Route: 048

REACTIONS (1)
  - HAEMOLYTIC ANAEMIA [None]
